FAERS Safety Report 10179042 (Version 1)
Quarter: 2014Q2

REPORT INFORMATION
  Report Type: Spontaneous
  Country: US (occurrence: US)
  Receive Date: 20140519
  Receipt Date: 20140519
  Transmission Date: 20141212
  Serious: No
  Sender: FDA-Public Use
  Company Number: US-BIOGENIDEC-2014BI042109

PATIENT
  Age: 51 Year
  Sex: Female

DRUGS (7)
  1. TECFIDERA [Suspect]
     Indication: MULTIPLE SCLEROSIS
     Route: 048
  2. GABAPENTIN [Concomitant]
     Indication: PRODUCT USED FOR UNKNOWN INDICATION
     Dates: start: 2006
  3. AMPYRA [Concomitant]
     Indication: GAIT DISTURBANCE
     Route: 048
     Dates: start: 20140331
  4. CALCIUM WITH VITAMIN D [Concomitant]
  5. VITAMIN B12 [Concomitant]
  6. IRON [Concomitant]
  7. PROVIGIL [Concomitant]
     Indication: FATIGUE
     Route: 048

REACTIONS (3)
  - Fatigue [Unknown]
  - Headache [Not Recovered/Not Resolved]
  - Feeling cold [Not Recovered/Not Resolved]
